FAERS Safety Report 21963415 (Version 3)
Quarter: 2025Q4

REPORT INFORMATION
  Report Type: Report from Study
  Country: CA (occurrence: CA)
  Receive Date: 20230207
  Receipt Date: 20251104
  Transmission Date: 20260118
  Serious: Yes (Hospitalization, Other)
  Sender: ABBVIE
  Company Number: CA-ABBVIE-4273130

PATIENT
  Age: 63 Year
  Sex: Female

DRUGS (7)
  1. RINVOQ [Suspect]
     Active Substance: UPADACITINIB
     Indication: Dermatitis atopic
     Dosage: FORM STRENGTH: 15 MG
     Route: 048
     Dates: start: 20220725, end: 20230111
  2. RINVOQ [Suspect]
     Active Substance: UPADACITINIB
     Indication: Dermatitis atopic
     Dosage: FORM STRENGTH: 15 MG
     Route: 048
     Dates: start: 20230127
  3. RINVOQ [Suspect]
     Active Substance: UPADACITINIB
     Indication: Dermatitis atopic
     Dosage: FORM STRENGTH: 15 MILLIGRAM
     Route: 048
  4. AMIKACIN [Concomitant]
     Active Substance: AMIKACIN
     Indication: Product used for unknown indication
     Dosage: I/V FOR 4 MONTHS
  5. ETHAMBUTOL HYDROCHLORIDE [Concomitant]
     Active Substance: ETHAMBUTOL HYDROCHLORIDE
     Indication: Product used for unknown indication
     Dosage: 21/2 TABLET
  6. MOXIFLOXACIN [Concomitant]
     Active Substance: MOXIFLOXACIN
     Indication: Product used for unknown indication
  7. AZITHROMYCIN [Concomitant]
     Active Substance: AZITHROMYCIN
     Indication: Product used for unknown indication
     Dosage: 2 TABLETS

REACTIONS (20)
  - Hospitalisation [Unknown]
  - Chapped lips [Unknown]
  - Total lung capacity decreased [Not Recovered/Not Resolved]
  - Pneumonia fungal [Unknown]
  - Mycobacterial infection [Unknown]
  - Dermatitis atopic [Unknown]
  - Vaginal infection [Unknown]
  - Abdominal pain [Unknown]
  - Diarrhoea [Unknown]
  - Asthenia [Unknown]
  - COVID-19 [Unknown]
  - Nausea [Unknown]
  - Bacterial infection [Not Recovered/Not Resolved]
  - Skin fragility [Unknown]
  - Tuberculosis [Unknown]
  - Pneumonia bacterial [Not Recovered/Not Resolved]
  - Nasopharyngitis [Unknown]
  - Pneumonia [Unknown]
  - Skin laceration [Unknown]
  - Impaired healing [Unknown]

NARRATIVE: CASE EVENT DATE: 20220101
